FAERS Safety Report 5634913-X (Version None)
Quarter: 2008Q1

REPORT INFORMATION
  Report Type: 
  Country: None (occurrence: None)
  Receive Date: 20080131
  Receipt Date: 20071102
  Transmission Date: 20080703
  Serious: No
  Sender: FDA-Public Use
  Company Number: 2007-US-000266

PATIENT
  Age: 13 Year
  Sex: Male
  Weight: 36.3 kg

DRUGS (2)
  1. INCRELEX [Suspect]
     Indication: ILL-DEFINED DISORDER
     Dosage: 44 UT
     Dates: start: 20070719
  2. VYVANSE [Concomitant]

REACTIONS (1)
  - HAIR TEXTURE ABNORMAL [None]
